FAERS Safety Report 9320628 (Version 2)
Quarter: 2013Q2

REPORT INFORMATION
  Report Type: Spontaneous
  Country: JP (occurrence: JP)
  Receive Date: 20130531
  Receipt Date: 20130603
  Transmission Date: 20140414
  Serious: Yes (Hospitalization)
  Sender: FDA-Public Use
  Company Number: JP-SP-2013-06423

PATIENT
  Age: 71 Year
  Sex: Male

DRUGS (1)
  1. IMMUCYST [Suspect]
     Indication: URINARY TRACT CARCINOMA IN SITU
     Dosage: INTRARENALLY WITH PLACEMENT DOUBLE J CATHETER
     Route: 050
     Dates: start: 20110706

REACTIONS (4)
  - Pyelonephritis [Recovered/Resolved]
  - Dysuria [Recovered/Resolved]
  - Incorrect route of drug administration [Recovered/Resolved]
  - Off label use [Recovered/Resolved]
